FAERS Safety Report 18180270 (Version 1)
Quarter: 2020Q3

REPORT INFORMATION
  Report Type: Spontaneous
  Country: US (occurrence: US)
  Receive Date: 20200821
  Receipt Date: 20200821
  Transmission Date: 20201103
  Serious: Yes (Hospitalization)
  Sender: FDA-Public Use
  Company Number: None

PATIENT
  Age: 74 Year
  Sex: Female

DRUGS (15)
  1. DIGOXIN. [Concomitant]
     Active Substance: DIGOXIN
  2. ISOSORB MONO TAB [Concomitant]
  3. REPATHA [Suspect]
     Active Substance: EVOLOCUMAB
     Indication: TYPE IIA HYPERLIPIDAEMIA
     Dosage: ?          OTHER FREQUENCY:EVERY 14 DAYS;?
     Route: 058
     Dates: start: 20190920
  4. LASIX [Concomitant]
     Active Substance: FUROSEMIDE
  5. METOPROLOL SUC [Concomitant]
  6. LISINOPRIL. [Concomitant]
     Active Substance: LISINOPRIL
  7. FISH OIL [Concomitant]
     Active Substance: FISH OIL
  8. WARFARIN [Concomitant]
     Active Substance: WARFARIN
  9. PACERONE [Concomitant]
     Active Substance: AMIODARONE HYDROCHLORIDE
  10. NITROGLYCERINE SUB [Concomitant]
  11. ENTRESTO [Concomitant]
     Active Substance: SACUBITRIL\VALSARTAN
  12. ASPIRIN. [Concomitant]
     Active Substance: ASPIRIN
  13. SPIRONOLACTONE. [Concomitant]
     Active Substance: SPIRONOLACTONE
  14. MECLIZINE [Concomitant]
     Active Substance: MECLIZINE HYDROCHLORIDE
  15. BRILINTA [Concomitant]
     Active Substance: TICAGRELOR

REACTIONS (1)
  - Therapy interrupted [None]

NARRATIVE: CASE EVENT DATE: 20200820
